FAERS Safety Report 7404979-5 (Version None)
Quarter: 2011Q2

REPORT INFORMATION
  Report Type: 
  Country: None (occurrence: None)
  Receive Date: 20110411
  Receipt Date: 20100824
  Transmission Date: 20111010
  Serious: No
  Sender: FDA-Public Use
  Company Number: US-KINGPHARMUSA00001-K201001076

PATIENT

DRUGS (1)
  1. THROMBIN-JMI [Suspect]
     Dosage: UNK, SINGLE
     Route: 058
     Dates: start: 20100824, end: 20100824

REACTIONS (3)
  - WRONG DRUG ADMINISTERED [None]
  - NO ADVERSE EVENT [None]
  - INCORRECT ROUTE OF DRUG ADMINISTRATION [None]
